FAERS Safety Report 5899188-5 (Version None)
Quarter: 2008Q3

REPORT INFORMATION
  Report Type: 
  Country: None (occurrence: None)
  Receive Date: 20080925
  Receipt Date: 20080917
  Transmission Date: 20090109
  Serious: Yes (Death)
  Sender: FDA-Public Use
  Company Number: BE-B.I. PHARMACEUTICALS,INC./RIDGEFIELD-2008-BL-00201BL

PATIENT
  Sex: Female

DRUGS (1)
  1. SIFROL [Suspect]
     Route: 048

REACTIONS (1)
  - DEATH [None]
